FAERS Safety Report 24419339 (Version 2)
Quarter: 2024Q4

REPORT INFORMATION
  Report Type: Report from Study
  Country: US (occurrence: US)
  Receive Date: 20241009
  Receipt Date: 20241018
  Transmission Date: 20250114
  Serious: No
  Sender: ROCHE
  Company Number: US-ROCHE-3497691

PATIENT
  Age: 60 Year
  Sex: Female

DRUGS (3)
  1. CATHFLO ACTIVASE [Suspect]
     Active Substance: ALTEPLASE
     Indication: Cerebral infarction
     Dosage: DATE OF SERVICE: 08/JAN/2024 (16 MG), 09/JAN/2024 (8 MG),
     Route: 065
  2. CATHFLO ACTIVASE [Suspect]
     Active Substance: ALTEPLASE
     Route: 065
     Dates: start: 20240108
  3. CATHFLO ACTIVASE [Suspect]
     Active Substance: ALTEPLASE
     Route: 065
     Dates: start: 20240109

REACTIONS (2)
  - Off label use [Unknown]
  - No adverse event [Unknown]
